FAERS Safety Report 12094742 (Version 12)
Quarter: 2016Q4

REPORT INFORMATION
  Report Type: Report from Study
  Country: CA (occurrence: CA)
  Receive Date: 20160219
  Receipt Date: 20161118
  Transmission Date: 20170206
  Serious: Yes (Other)
  Sender: FDA-Public Use
  Company Number: CA-SA-2015SA183652

PATIENT
  Age: 51 Year
  Sex: Female
  Weight: 63 kg

DRUGS (2)
  1. LEMTRADA [Suspect]
     Active Substance: ALEMTUZUMAB
     Indication: RELAPSING-REMITTING MULTIPLE SCLEROSIS
     Route: 041
     Dates: start: 20151109, end: 20151113
  2. SOLU-MEDROL [Concomitant]
     Active Substance: METHYLPREDNISOLONE SODIUM SUCCINATE
     Route: 042
     Dates: start: 20151110, end: 20151111

REACTIONS (27)
  - Fatigue [Recovered/Resolved]
  - Rash [Recovered/Resolved]
  - Hypoaesthesia [Recovered/Resolved]
  - Pyrexia [Recovered/Resolved]
  - Menstrual disorder [Not Recovered/Not Resolved]
  - Balance disorder [Recovered/Resolved]
  - Pregnancy test [Recovered/Resolved]
  - Erythema [Recovered/Resolved]
  - Neuralgia [Unknown]
  - Lymphocyte count decreased [Not Recovered/Not Resolved]
  - Rash [Recovering/Resolving]
  - Cytology abnormal [Unknown]
  - Mean cell volume increased [Not Recovered/Not Resolved]
  - Urine analysis abnormal [Unknown]
  - Diarrhoea [Recovered/Resolved]
  - Gingival bleeding [Recovered/Resolved]
  - Oral disorder [Recovered/Resolved]
  - Haemorrhoidal haemorrhage [Recovered/Resolved]
  - Red cell distribution width increased [Recovered/Resolved]
  - Diplopia [Recovered/Resolved]
  - Herpes zoster [Recovering/Resolving]
  - Haemorrhoids [Recovered/Resolved]
  - Urine abnormality [Not Recovered/Not Resolved]
  - Back pain [Recovered/Resolved]
  - Poor quality sleep [Recovered/Resolved]
  - Platelet count decreased [Recovered/Resolved]
  - White blood cell count decreased [Not Recovered/Not Resolved]

NARRATIVE: CASE EVENT DATE: 2015
